FAERS Safety Report 17031554 (Version 1)
Quarter: 2019Q4

REPORT INFORMATION
  Report Type: Spontaneous
  Country: US (occurrence: US)
  Receive Date: 20191113
  Receipt Date: 20191113
  Transmission Date: 20200122
  Serious: Yes (Life-Threatening)
  Sender: FDA-Public Use
  Company Number: None

PATIENT
  Age: 73 Year
  Sex: Female
  Weight: 90.7 kg

DRUGS (1)
  1. PROTAMINE SULFATE. [Suspect]
     Active Substance: PROTAMINE SULFATE
     Indication: CAROTID ENDARTERECTOMY
     Dosage: ?          OTHER FREQUENCY:ONCE;?
     Route: 040
     Dates: start: 20191113, end: 20191113

REACTIONS (2)
  - Product quality issue [None]
  - Procedural hypotension [None]

NARRATIVE: CASE EVENT DATE: 20191113
